FAERS Safety Report 11126523 (Version 3)
Quarter: 2015Q3

REPORT INFORMATION
  Report Type: Spontaneous
  Country: BR (occurrence: BR)
  Receive Date: 20150520
  Receipt Date: 20150825
  Transmission Date: 20151125
  Serious: Yes (Hospitalization, Other)
  Sender: FDA-Public Use
  Company Number: BR-ASTRAZENECA-2015SE47210

PATIENT
  Age: 653 Month
  Sex: Female
  Weight: 66 kg

DRUGS (5)
  1. ROSUVASTATIN [Suspect]
     Active Substance: ROSUVASTATIN
     Indication: BLOOD CHOLESTEROL INCREASED
     Route: 048
     Dates: end: 201505
  2. ATACAND HCT [Suspect]
     Active Substance: CANDESARTAN CILEXETIL\HYDROCHLOROTHIAZIDE
     Indication: BLOOD PRESSURE ABNORMAL
     Dosage: 16/12.5 MG DAILY
     Route: 048
     Dates: start: 2014
  3. CLOPIDOGREL [Concomitant]
     Active Substance: CLOPIDOGREL BISULFATE
     Indication: ANTICOAGULANT THERAPY
     Route: 048
     Dates: start: 201501
  4. ASA [Concomitant]
     Active Substance: ASPIRIN
     Indication: ANTICOAGULANT THERAPY
     Dosage: DAILY
     Route: 048
     Dates: start: 201501
  5. BRILINTA [Suspect]
     Active Substance: TICAGRELOR
     Route: 048

REACTIONS (4)
  - Coronary artery occlusion [Unknown]
  - Carotid artery occlusion [Unknown]
  - Intentional product misuse [Unknown]
  - Vascular calcification [Recovered/Resolved]

NARRATIVE: CASE EVENT DATE: 201501
